FAERS Safety Report 9394750 (Version 1)
Quarter: 2013Q3

REPORT INFORMATION
  Report Type: Spontaneous
  Country: US (occurrence: None)
  Receive Date: 20130709
  Receipt Date: 20130709
  Transmission Date: 20140515
  Serious: Yes (Life-Threatening, Hospitalization)
  Sender: FDA-Public Use
  Company Number: None

PATIENT
  Age: 31 None
  Sex: Female

DRUGS (5)
  1. LISINOPRIL [Suspect]
     Indication: HYPERTENSION
     Dosage: 1 PILL DAILY BY MOUTH
     Route: 048
     Dates: start: 20130528, end: 20130610
  2. UROSODIOL [Concomitant]
  3. CARASATE [Concomitant]
  4. MULTI VITAMIN [Concomitant]
  5. B 12 [Concomitant]

REACTIONS (3)
  - Lip swelling [None]
  - Drug hypersensitivity [None]
  - Feeling abnormal [None]
